FAERS Safety Report 5096274-7 (Version None)
Quarter: 2006Q3

REPORT INFORMATION
  Report Type: 
  Country: None (occurrence: None)
  Receive Date: 20060905
  Receipt Date: 20060822
  Transmission Date: 20061208
  Serious: Yes (Other)
  Sender: FDA-Public Use
  Company Number: GB-ROCHE-461334

PATIENT
  Age: 17 Year
  Sex: Male
  Weight: 74 kg

DRUGS (2)
  1. ACCUTANE [Suspect]
     Indication: ACNE
     Route: 048
     Dates: start: 20060201, end: 20060509
  2. FLUCLOXACILLIN [Concomitant]
     Indication: INFECTED CYST
     Route: 048
     Dates: start: 20060227, end: 20060306

REACTIONS (3)
  - ANXIETY [None]
  - DEPRESSION [None]
  - SUICIDAL IDEATION [None]
